FAERS Safety Report 7552663-X (Version None)
Quarter: 2011Q2

REPORT INFORMATION
  Report Type: 
  Country: None (occurrence: None)
  Receive Date: 20110616
  Receipt Date: 20110412
  Transmission Date: 20111010
  Serious: No
  Sender: FDA-Public Use
  Company Number: US-MYLANLABS-2011S1007814

PATIENT
  Age: 69 Year
  Sex: Male

DRUGS (2)
  1. HYDROXYZINE HYDROCHLORIDE [Suspect]
     Indication: ECZEMA
     Route: 048
     Dates: start: 20110317, end: 20110318
  2. HYDROXYZINE HYDROCHLORIDE [Suspect]
     Route: 048
     Dates: start: 20110331, end: 20110331

REACTIONS (1)
  - ASTHENIA [None]
